FAERS Safety Report 6223265-2 (Version None)
Quarter: 2009Q2

REPORT INFORMATION
  Report Type: 
  Country: None (occurrence: None)
  Receive Date: 20090609
  Receipt Date: 20090525
  Transmission Date: 20091009
  Serious: Yes (Hospitalization)
  Sender: FDA-Public Use
  Company Number: CH-WYE-G03732009

PATIENT
  Age: 81 Year
  Sex: Female

DRUGS (22)
  1. EFFEXOR [Suspect]
     Indication: DEPRESSION
     Dosage: SEE IMAGE;  ORAL
     Dates: start: 20081101, end: 20090324
  2. EFFEXOR [Suspect]
     Indication: DEPRESSION
     Dosage: SEE IMAGE;  ORAL
     Dates: start: 20090325, end: 20090328
  3. EFFEXOR [Suspect]
     Indication: DEPRESSION
     Dosage: SEE IMAGE;  ORAL
     Dates: start: 20090329, end: 20090331
  4. EFFEXOR [Suspect]
     Indication: DEPRESSION
     Dosage: SEE IMAGE;  ORAL
     Dates: start: 20090401, end: 20090407
  5. FLURAZEPAM HCL [Suspect]
     Dosage: 15 MG 1X PER 1 DAY, ORAL; 30 MG 1X PER 1 DAY, ORAL
     Route: 048
     Dates: start: 20080101, end: 20090330
  6. FLURAZEPAM HCL [Suspect]
     Dosage: 15 MG 1X PER 1 DAY, ORAL; 30 MG 1X PER 1 DAY, ORAL
     Route: 048
     Dates: start: 20090331
  7. MORPHINE SULFATE [Suspect]
     Dosage: 15.2MG 1X PER 1 DAY,ORAL; 7.6MG 1X PER 1 DAY, ORAL; 3.8MG 1X PER 1 DAY,ORAL; 20MG 1X PER 1 DAY, ORAL
     Route: 048
     Dates: start: 20090101, end: 20090325
  8. MORPHINE SULFATE [Suspect]
     Dosage: 15.2MG 1X PER 1 DAY,ORAL; 7.6MG 1X PER 1 DAY, ORAL; 3.8MG 1X PER 1 DAY,ORAL; 20MG 1X PER 1 DAY, ORAL
     Route: 048
     Dates: start: 20090326, end: 20090331
  9. MORPHINE SULFATE [Suspect]
     Dosage: 15.2MG 1X PER 1 DAY,ORAL; 7.6MG 1X PER 1 DAY, ORAL; 3.8MG 1X PER 1 DAY,ORAL; 20MG 1X PER 1 DAY, ORAL
     Route: 048
     Dates: start: 20090401, end: 20090408
  10. MORPHINE SULFATE [Suspect]
     Dosage: 15.2MG 1X PER 1 DAY,ORAL; 7.6MG 1X PER 1 DAY, ORAL; 3.8MG 1X PER 1 DAY,ORAL; 20MG 1X PER 1 DAY, ORAL
     Route: 048
     Dates: start: 20090409, end: 20090412
  11. NOZINAN (LEVOMEPROMAZINE, , 0) [Suspect]
     Dosage: 25 MG 1X PER 1 DAY, ORAL
     Route: 048
     Dates: start: 20080101, end: 20090324
  12. RISPERDAL [Suspect]
     Dates: start: 20090301
  13. OXAZEPAM [Suspect]
     Dosage: 30MG 1X PER 1 DAY, ORAL, 50MG 1X PER 1 DAY, ORAL; 15MG 1X PER 1 DAY, ORAL;
     Route: 048
     Dates: start: 20080101, end: 20090328
  14. OXAZEPAM [Suspect]
     Dosage: 30MG 1X PER 1 DAY, ORAL, 50MG 1X PER 1 DAY, ORAL; 15MG 1X PER 1 DAY, ORAL;
     Route: 048
     Dates: start: 20090329, end: 20090407
  15. OXAZEPAM [Suspect]
     Dosage: 30MG 1X PER 1 DAY, ORAL, 50MG 1X PER 1 DAY, ORAL; 15MG 1X PER 1 DAY, ORAL;
     Route: 048
     Dates: start: 20090408, end: 20090414
  16. TRAMADOL HYDROCHLORIDE [Suspect]
     Indication: PAIN
     Dosage: UP TITRATION TO 200MG PER DAY, ORAL; 400 MG 1X PER 1 DAY, ORAL
     Route: 048
     Dates: start: 20090101, end: 20090319
  17. TRAMADOL HYDROCHLORIDE [Suspect]
     Indication: PAIN
     Dosage: UP TITRATION TO 200MG PER DAY, ORAL; 400 MG 1X PER 1 DAY, ORAL
     Route: 048
     Dates: start: 20090320, end: 20090416
  18. ASPIRIN [Concomitant]
  19. NEXIUM [Concomitant]
  20. METFORMIN HCL [Concomitant]
  21. HUMALOG [Concomitant]
  22. FUROSEMIDE [Concomitant]

REACTIONS (17)
  - AFFECT LABILITY [None]
  - AGGRESSION [None]
  - AGITATION [None]
  - CARDIAC HYPERTROPHY [None]
  - DEHYDRATION [None]
  - DELIRIUM [None]
  - DISORIENTATION [None]
  - DRUG INEFFECTIVE [None]
  - DRUG INTERACTION [None]
  - DRUG LEVEL INCREASED [None]
  - PAIN [None]
  - PERSECUTORY DELUSION [None]
  - PNEUMONIA [None]
  - PSYCHOMOTOR HYPERACTIVITY [None]
  - RESTLESSNESS [None]
  - SEDATION [None]
  - SLEEP DISORDER [None]
